FAERS Safety Report 10361969 (Version 1)
Quarter: 2014Q3

REPORT INFORMATION
  Report Type: Spontaneous
  Country: US (occurrence: US)
  Receive Date: 20140805
  Receipt Date: 20140805
  Transmission Date: 20150326
  Serious: Yes (Other)
  Sender: FDA-Public Use
  Company Number: US-AMGEN-USASP2014057708

PATIENT
  Age: 82 Year
  Sex: Female

DRUGS (2)
  1. PYRIDIUM [Concomitant]
     Active Substance: PHENAZOPYRIDINE
  2. PROLIA [Suspect]
     Active Substance: DENOSUMAB
     Indication: OSTEOPOROSIS POSTMENOPAUSAL
     Route: 065

REACTIONS (10)
  - Spinal deformity [Not Recovered/Not Resolved]
  - Limb deformity [Unknown]
  - Fall [Unknown]
  - Varicose vein [Unknown]
  - Spinal fracture [Unknown]
  - Dysstasia [Unknown]
  - Walking aid user [Unknown]
  - Post procedural complication [Unknown]
  - Tooth fracture [Unknown]
  - Peripheral swelling [Unknown]
